FAERS Safety Report 8586911-4 (Version None)
Quarter: 2012Q3

REPORT INFORMATION
  Report Type: 
  Country: None (occurrence: None)
  Receive Date: 20120810
  Receipt Date: 20120727
  Transmission Date: 20120928
  Serious: Yes (Other)
  Sender: FDA-Public Use
  Company Number: CHPA2012US016875

PATIENT
  Age: 90 Year
  Sex: Female

DRUGS (2)
  1. MAALOX ADV MAXIMUM STRENGTH ANTACID/ANTIGAS CHEWABLE [Suspect]
     Dosage: 1 DF, BID
     Route: 048
     Dates: start: 20120726, end: 20120726
  2. MAALOX ADV MAXIMUM STRENGTH ANTACID/ANTIGAS CHEWABLE [Suspect]
     Indication: HIATUS HERNIA
     Dosage: UNK, QPM
     Route: 048

REACTIONS (2)
  - DRUG INEFFECTIVE FOR UNAPPROVED INDICATION [None]
  - DRUG DEPENDENCE [None]
